FAERS Safety Report 7527089-5 (Version None)
Quarter: 2011Q2

REPORT INFORMATION
  Report Type: 
  Country: None (occurrence: None)
  Receive Date: 20110606
  Receipt Date: 20110527
  Transmission Date: 20111010
  Serious: Yes (Disabling, Other)
  Sender: FDA-Public Use
  Company Number: NZ-AMGEN-NZLSP2011023997

PATIENT
  Age: 41 Year
  Sex: Male
  Weight: 120 kg

DRUGS (2)
  1. METFORMIN HCL [Concomitant]
     Indication: DIABETES MELLITUS
     Dosage: 500 MG, 2X/DAY
     Route: 048
  2. ENBREL [Suspect]
     Indication: RHEUMATOID ARTHRITIS
     Dosage: UNK
     Route: 058
     Dates: start: 20110125, end: 20110401

REACTIONS (3)
  - PAPILLITIS [None]
  - PAPILLOEDEMA [None]
  - SCOTOMA [None]
